FAERS Safety Report 7008791-0 (Version None)
Quarter: 2010Q3

REPORT INFORMATION
  Report Type: 
  Country: None (occurrence: None)
  Receive Date: 20100921
  Receipt Date: 20100913
  Transmission Date: 20110219
  Serious: Yes (Other)
  Sender: FDA-Public Use
  Company Number: GER/UKI/10/0015564

PATIENT
  Age: 66 Year
  Sex: Male
  Weight: 102 kg

DRUGS (10)
  1. AMLODIPINE [Suspect]
     Indication: BLOOD PRESSURE INCREASED
     Dosage: 10 MG, 1 IN 1 D
     Dates: end: 20100610
  2. AMLODIPINE [Suspect]
     Indication: HIV INFECTION
     Dosage: 10 MG, 1 IN 1 D
     Dates: end: 20100610
  3. AMLODIPINE [Suspect]
     Indication: BLOOD PRESSURE INCREASED
     Dosage: 10 MG, 1 IN 1 D
     Dates: start: 20100421
  4. AMLODIPINE [Suspect]
     Indication: HIV INFECTION
     Dosage: 10 MG, 1 IN 1 D
     Dates: start: 20100421
  5. RITONAVIR [Suspect]
     Indication: HERPES SIMPLEX
     Dosage: 100 MG, 1 IN 1 D, ORAL; 500 MG, 2 IN 1 D
     Route: 048
     Dates: start: 20100412
  6. RITONAVIR [Suspect]
     Indication: HIV INFECTION
     Dosage: 100 MG, 1 IN 1 D, ORAL; 500 MG, 2 IN 1 D
     Route: 048
     Dates: start: 20100412
  7. PREZISTA [Suspect]
     Indication: HIV INFECTION
     Dosage: 800 MG, 1 IN 1 D, ORAL
     Route: 048
     Dates: start: 20100412
  8. TRUVADA [Concomitant]
  9. PENICILLIN (BENZYLPENICILLIN) [Concomitant]
  10. FAMCICLOVIR [Concomitant]

REACTIONS (3)
  - DRUG INTERACTION [None]
  - MERALGIA PARAESTHETICA [None]
  - OEDEMA PERIPHERAL [None]
